FAERS Safety Report 13515455 (Version 3)
Quarter: 2017Q4

REPORT INFORMATION
  Report Type: Spontaneous
  Country: US (occurrence: US)
  Receive Date: 20170504
  Receipt Date: 20171122
  Transmission Date: 20180320
  Serious: Yes (Hospitalization, Other)
  Sender: FDA-Public Use
  Company Number: US-PFIZER INC-2017190695

PATIENT
  Age: 56 Year
  Sex: Female
  Weight: 63.5 kg

DRUGS (4)
  1. ELIQUIS [Concomitant]
     Active Substance: APIXABAN
     Dosage: UNK
  2. IBRANCE [Suspect]
     Active Substance: PALBOCICLIB
     Indication: BREAST CANCER
     Dosage: 125 MG, CYCLIC[DAILY FOR 21 DAYS OFF FOR 7 DAYS]
     Route: 048
     Dates: start: 2016
  3. KEPPRA [Concomitant]
     Active Substance: LEVETIRACETAM
     Indication: SEIZURE
     Dosage: 1000 MG, 1X/DAY
     Dates: start: 201703
  4. IBRANCE [Suspect]
     Active Substance: PALBOCICLIB
     Indication: NEOPLASM MALIGNANT

REACTIONS (12)
  - Burn oesophageal [Recovering/Resolving]
  - Neoplasm recurrence [Recovering/Resolving]
  - Brain oedema [Recovering/Resolving]
  - Mental impairment [Recovering/Resolving]
  - Decreased appetite [Recovering/Resolving]
  - Drug dose omission [Unknown]
  - Feeling abnormal [Recovering/Resolving]
  - Loss of consciousness [Recovered/Resolved]
  - Abdominal discomfort [Not Recovered/Not Resolved]
  - Brain abscess [Recovering/Resolving]
  - Vomiting [Recovering/Resolving]
  - Gait disturbance [Recovering/Resolving]

NARRATIVE: CASE EVENT DATE: 201703
